FAERS Safety Report 24005135 (Version 2)
Quarter: 2024Q3

REPORT INFORMATION
  Report Type: Spontaneous
  Country: JP (occurrence: JP)
  Receive Date: 20240624
  Receipt Date: 20240723
  Transmission Date: 20241017
  Serious: Yes (Other)
  Sender: REGENERON
  Company Number: JP-BAYER-2024A089483

PATIENT
  Age: 78 Year

DRUGS (2)
  1. EYLEA HD [Suspect]
     Active Substance: AFLIBERCEPT
     Indication: Age-related macular degeneration
     Dosage: RIGHT EYE, 8 ML, FIRTST TIME, SOLUTION FOR INJECTION, 114.3 MG/ML
     Route: 031
     Dates: start: 20240614, end: 20240614
  2. EYLEA [Suspect]
     Active Substance: AFLIBERCEPT
     Indication: Age-related macular degeneration
     Dosage: RIGHT EYE, 2 MG, LONG TERM, SOLUTION FOR INJECTION, 40 MG/ML
     Route: 031
     Dates: end: 202405

REACTIONS (3)
  - Retinal exudates [Recovering/Resolving]
  - Retinal haemorrhage [Recovering/Resolving]
  - Visual impairment [Unknown]

NARRATIVE: CASE EVENT DATE: 20240615
